FAERS Safety Report 23059940 (Version 2)
Quarter: 2024Q2

REPORT INFORMATION
  Report Type: Spontaneous
  Country: CN (occurrence: CN)
  Receive Date: 20231012
  Receipt Date: 20240516
  Transmission Date: 20240716
  Serious: Yes (Hospitalization, Other)
  Sender: FDA-Public Use
  Company Number: CN-ORGANON-O2310CHN001406

PATIENT
  Age: 33 Year
  Sex: Female
  Weight: 53 kg

DRUGS (9)
  1. FOLLITROPIN BETA [Suspect]
     Active Substance: FOLLITROPIN BETA
     Indication: Superovulation
     Dosage: 120IU, QD
     Route: 058
     Dates: start: 20230831, end: 20230904
  2. FOLLITROPIN BETA [Suspect]
     Active Substance: FOLLITROPIN BETA
     Dosage: 125IU, QD|
     Route: 058
     Dates: start: 20230905, end: 20230907
  3. LETROZOLE [Suspect]
     Active Substance: LETROZOLE
     Indication: Superovulation
     Dosage: 2 TABLETS, QD
     Route: 048
     Dates: start: 20230831, end: 20230904
  4. MENOTROPINS [Suspect]
     Active Substance: MENOTROPINS
     Indication: Superovulation
     Dosage: 75IU, QD
     Route: 030
     Dates: start: 20230831, end: 20230909
  5. MENOTROPINS [Suspect]
     Active Substance: MENOTROPINS
     Dosage: 150IU, QD
     Route: 030
     Dates: start: 20230910, end: 20230910
  6. CHORIONIC GONADOTROPHIN [Suspect]
     Active Substance: CHORIOGONADOTROPIN ALFA
     Indication: Superovulation
     Dosage: 4000IU, QD
     Route: 030
     Dates: start: 20230910, end: 20230910
  7. TRIPTORELIN ACETATE [Suspect]
     Active Substance: TRIPTORELIN ACETATE
     Indication: Superovulation
     Dosage: 0.2MG, QD|
     Route: 058
     Dates: start: 20230910, end: 20230910
  8. SODIUM CHLORIDE [Concomitant]
     Active Substance: SODIUM CHLORIDE
     Indication: Vehicle solution use
     Dosage: 2ML, QD
     Route: 030
     Dates: start: 20230831, end: 20230909
  9. SODIUM CHLORIDE [Concomitant]
     Active Substance: SODIUM CHLORIDE
     Dosage: 2ML, QD
     Route: 030
     Dates: start: 20230910, end: 20230910

REACTIONS (6)
  - Ovarian hyperstimulation syndrome [Recovering/Resolving]
  - Abdominal distension [Recovering/Resolving]
  - Abdominal pain [Recovering/Resolving]
  - Nausea [Recovering/Resolving]
  - Vomiting [Recovering/Resolving]
  - Diarrhoea [Recovering/Resolving]

NARRATIVE: CASE EVENT DATE: 20230915
